FAERS Safety Report 24586797 (Version 2)
Quarter: 2024Q4

REPORT INFORMATION
  Report Type: Spontaneous
  Country: JP (occurrence: JP)
  Receive Date: 20241107
  Receipt Date: 20241125
  Transmission Date: 20250115
  Serious: Yes (Hospitalization, Other)
  Sender: UCB
  Company Number: JP-UCBJ-CD202410664UCBPHAPROD

PATIENT
  Age: 12 Year
  Sex: Female

DRUGS (2)
  1. LEVETIRACETAM [Suspect]
     Active Substance: LEVETIRACETAM
     Indication: Epilepsy
     Dosage: UNK
     Route: 048
  2. DEXAMETHASONE [Concomitant]
     Active Substance: DEXAMETHASONE
     Indication: Product used for unknown indication
     Dosage: UNK

REACTIONS (8)
  - Urinary tract infection [Unknown]
  - Neurogenic bladder [Unknown]
  - COVID-19 [Recovered/Resolved]
  - Gastric fistula [Unknown]
  - Arthropod infestation [Recovered/Resolved]
  - Spinal cord operation [Unknown]
  - Bladder catheterisation [Unknown]
  - Skin operation [Unknown]

NARRATIVE: CASE EVENT DATE: 20220701
